FAERS Safety Report 5191447-7 (Version None)
Quarter: 2006Q4

REPORT INFORMATION
  Report Type: 
  Country: None (occurrence: None)
  Receive Date: 20061226
  Receipt Date: 20020823
  Transmission Date: 20070319
  Serious: Yes (Life-Threatening, Hospitalization)
  Sender: FDA-Public Use
  Company Number: FR-MERCK-0412USA02720

PATIENT
  Age: 52 Year
  Sex: Male

DRUGS (5)
  1. MODURETIC 5-50 [Suspect]
     Route: 048
     Dates: start: 20020601, end: 20020802
  2. CANDESARTAN CILEXETIL [Suspect]
     Route: 048
     Dates: start: 20020601, end: 20020802
  3. ASPIRIN LYSINE [Concomitant]
     Route: 065
  4. FUROSEMIDE [Concomitant]
     Route: 065
     Dates: start: 20000101
  5. ISOPTIN [Concomitant]
     Route: 065
     Dates: start: 20000101

REACTIONS (5)
  - ATRIOVENTRICULAR BLOCK [None]
  - HYPERKALAEMIA [None]
  - SINOATRIAL BLOCK [None]
  - SYNCOPE [None]
  - VENTRICULAR ARRHYTHMIA [None]
